FAERS Safety Report 6381568-5 (Version None)
Quarter: 2009Q3

REPORT INFORMATION
  Report Type: 
  Country: None (occurrence: None)
  Receive Date: 20090925
  Receipt Date: 20090914
  Transmission Date: 20100115
  Serious: Yes (Other)
  Sender: FDA-Public Use
  Company Number: 8052331

PATIENT
  Age: 26 Year
  Sex: Female

DRUGS (1)
  1. KEPPRA [Suspect]
     Indication: PARTIAL SEIZURES
     Dosage: 2000 MG 1/D PO
     Route: 048
     Dates: start: 20090801

REACTIONS (2)
  - PETECHIAE [None]
  - THROMBOCYTOPENIA [None]
